FAERS Safety Report 10283748 (Version 2)
Quarter: 2014Q3

REPORT INFORMATION
  Report Type: Spontaneous
  Country: US (occurrence: US)
  Receive Date: 20140708
  Receipt Date: 20140711
  Transmission Date: 20150326
  Serious: Yes (Other)
  Sender: FDA-Public Use
  Company Number: US-PFIZER INC-2014182809

PATIENT
  Sex: Male

DRUGS (1)
  1. SUTENT [Suspect]
     Active Substance: SUNITINIB MALATE
     Indication: GASTROINTESTINAL STROMAL TUMOUR
     Dosage: UNK

REACTIONS (4)
  - Gastric fistula [Not Recovered/Not Resolved]
  - Gastric perforation [Not Recovered/Not Resolved]
  - Abscess [Not Recovered/Not Resolved]
  - Post procedural complication [Not Recovered/Not Resolved]
